FAERS Safety Report 12344763 (Version 2)
Quarter: 2016Q3

REPORT INFORMATION
  Report Type: Spontaneous
  Country: US (occurrence: US)
  Receive Date: 20160507
  Receipt Date: 20160912
  Transmission Date: 20161109
  Serious: Yes (Hospitalization, Other)
  Sender: FDA-Public Use
  Company Number: US-JNJFOC-20160415836

PATIENT
  Age: 79 Year
  Sex: Female

DRUGS (5)
  1. XARELTO [Suspect]
     Active Substance: RIVAROXABAN
     Indication: ATRIAL FIBRILLATION
     Route: 048
     Dates: start: 20150106, end: 201503
  2. XARELTO [Suspect]
     Active Substance: RIVAROXABAN
     Indication: CEREBROVASCULAR ACCIDENT PROPHYLAXIS
     Route: 048
     Dates: start: 20150106, end: 201503
  3. LOVENOX [Suspect]
     Active Substance: ENOXAPARIN SODIUM
     Indication: CEREBROVASCULAR ACCIDENT PROPHYLAXIS
     Dosage: 100 MG PER ML
     Route: 065
     Dates: end: 201503
  4. XARELTO [Suspect]
     Active Substance: RIVAROXABAN
     Indication: THROMBOSIS PROPHYLAXIS
     Route: 048
     Dates: start: 20150106, end: 201503
  5. LOVENOX [Suspect]
     Active Substance: ENOXAPARIN SODIUM
     Indication: ATRIAL FIBRILLATION
     Dosage: 100 MG PER ML
     Route: 065
     Dates: end: 201503

REACTIONS (3)
  - Rectal haemorrhage [Recovered/Resolved]
  - Haemorrhoidal haemorrhage [Unknown]
  - Gastrointestinal haemorrhage [Recovered/Resolved]

NARRATIVE: CASE EVENT DATE: 201502
